FAERS Safety Report 12517544 (Version 4)
Quarter: 2016Q3

REPORT INFORMATION
  Report Type: Spontaneous
  Country: US (occurrence: US)
  Receive Date: 20160630
  Receipt Date: 20160819
  Transmission Date: 20161109
  Serious: No
  Sender: FDA-Public Use
  Company Number: US-ACTELION-A-US2016-138320

PATIENT
  Age: 62 Year
  Sex: Female
  Weight: 108.9 kg

DRUGS (23)
  1. UPTRAVI [Suspect]
     Active Substance: SELEXIPAG
     Indication: PULMONARY ARTERIAL HYPERTENSION
     Dosage: 800 MCG, BID
     Route: 048
     Dates: start: 20160701
  2. UPTRAVI [Suspect]
     Active Substance: SELEXIPAG
     Dosage: 600 MCG, BID
     Route: 048
     Dates: start: 20160705
  3. UPTRAVI [Suspect]
     Active Substance: SELEXIPAG
     Dosage: 1000 UNK, UNK
     Route: 048
  4. AMBRISENTAN [Suspect]
     Active Substance: AMBRISENTAN
     Indication: PULMONARY ARTERIAL HYPERTENSION
     Dosage: 5 MG, QD
     Route: 048
     Dates: start: 20150128
  5. NORCO [Concomitant]
     Active Substance: ACETAMINOPHEN\HYDROCODONE BITARTRATE
  6. UPTRAVI [Suspect]
     Active Substance: SELEXIPAG
     Dosage: 1200 UNK, UNK
     Route: 048
     Dates: start: 20160801
  7. AUGMENTIN [Concomitant]
     Active Substance: AMOXICILLIN\CLAVULANATE POTASSIUM
  8. PREDNISONE. [Concomitant]
     Active Substance: PREDNISONE
  9. GLIPIZIDE. [Concomitant]
     Active Substance: GLIPIZIDE
  10. METOLAZONE. [Suspect]
     Active Substance: METOLAZONE
     Indication: PRODUCT USED FOR UNKNOWN INDICATION
     Dosage: UNK
     Route: 065
  11. RIOCIGUAT [Concomitant]
     Active Substance: RIOCIGUAT
  12. REFRESH [Concomitant]
     Active Substance: UNSPECIFIED INGREDIENT
  13. RITUXAN [Concomitant]
     Active Substance: RITUXIMAB
  14. KLOR-CON [Concomitant]
     Active Substance: POTASSIUM CHLORIDE
  15. OMEPRAZOLE. [Concomitant]
     Active Substance: OMEPRAZOLE
  16. NASALCROM [Concomitant]
     Active Substance: CROMOLYN SODIUM
  17. LORTAB [Concomitant]
     Active Substance: ACETAMINOPHEN\HYDROCODONE BITARTRATE
  18. LEXAPRO [Concomitant]
     Active Substance: ESCITALOPRAM OXALATE
  19. LISINOPRIL. [Concomitant]
     Active Substance: LISINOPRIL
  20. VITAMIN D [Concomitant]
     Active Substance: CHOLECALCIFEROL
  21. LEFLUNOMIDE. [Concomitant]
     Active Substance: LEFLUNOMIDE
  22. VESICARE [Concomitant]
     Active Substance: SOLIFENACIN SUCCINATE
  23. TORSEMIDE. [Concomitant]
     Active Substance: TORSEMIDE

REACTIONS (5)
  - Bronchitis [Unknown]
  - Headache [Unknown]
  - Myalgia [Unknown]
  - Respiratory tract infection [Unknown]
  - Nasal congestion [Unknown]
